FAERS Safety Report 8986119 (Version 1)
Quarter: 2012Q4

REPORT INFORMATION
  Report Type: Spontaneous
  Country: US (occurrence: None)
  Receive Date: 20121009
  Receipt Date: 20121009
  Transmission Date: 20130627
  Serious: Yes (Other)
  Sender: FDA-Public Use
  Company Number: 140032

PATIENT
  Age: 77 Year
  Sex: Male

DRUGS (1)
  1. MITOXANTRONE [Suspect]
     Indication: PROSTATE CANCER
     Dates: start: 20110316, end: 20110809

REACTIONS (2)
  - Medication error [None]
  - Incorrect dose administered [None]
